FAERS Safety Report 18742018 (Version 5)
Quarter: 2021Q3

REPORT INFORMATION
  Report Type: Spontaneous
  Country: CZ (occurrence: CZ)
  Receive Date: 20210114
  Receipt Date: 20210712
  Transmission Date: 20211014
  Serious: Yes (Other)
  Sender: FDA-Public Use
  Company Number: CZ-MYLANLABS-2021M1001545

PATIENT
  Sex: Female

DRUGS (17)
  1. OXALIPLATIN. [Suspect]
     Active Substance: OXALIPLATIN
     Indication: COLORECTAL CANCER METASTATIC
     Dosage: 5 CYCLES
     Route: 042
     Dates: start: 2011
  2. LEUCOVORIN                         /00566701/ [Suspect]
     Active Substance: LEUCOVORIN
     Dosage: 4 CYCLICAL
     Dates: start: 201406
  3. FLUOROURACIL. [Suspect]
     Active Substance: FLUOROURACIL
     Indication: COLORECTAL CANCER
     Dosage: 4 CYCLICAL
     Dates: start: 201406
  4. OXALIPLATIN. [Suspect]
     Active Substance: OXALIPLATIN
     Dosage: 6 CYCLES
     Route: 065
  5. 5?FLUOROURACIL                     /00098801/ [Suspect]
     Active Substance: FLUOROURACIL
     Indication: COLORECTAL CANCER
     Dosage: UNK
     Route: 042
     Dates: start: 2014, end: 201608
  6. 5?FLUOROURACIL                     /00098801/ [Suspect]
     Active Substance: FLUOROURACIL
     Dosage: UNK (A TOTAL OF 25 CYCLES OF FOLFIRI (OR FUFA) PLUS CETUXIMAB)
     Route: 065
     Dates: start: 201511
  7. 5?FLUOROURACIL                     /00098801/ [Suspect]
     Active Substance: FLUOROURACIL
     Dosage: 4 CYCLICAL
  8. CALCIUM FOLINATE [Suspect]
     Active Substance: LEUCOVORIN CALCIUM
     Indication: COLORECTAL CANCER METASTATIC
     Dosage: UNK
     Route: 042
     Dates: start: 2014, end: 201608
  9. BEVACIZUMAB. [Suspect]
     Active Substance: BEVACIZUMAB
     Indication: COLORECTAL CANCER METASTATIC
     Dosage: 5 CYCLE
     Route: 042
     Dates: start: 2011
  10. LEUCOVORIN                         /00566701/ [Suspect]
     Active Substance: LEUCOVORIN
     Indication: COLORECTAL CANCER
     Dosage: 6 CYCLES
     Route: 042
  11. 5?FLUOROURACIL                     /00098801/ [Suspect]
     Active Substance: FLUOROURACIL
     Dosage: 5 CYCLES OF MFOLFOX6, POSTOPERATIVELY
     Route: 065
  12. LEUCOVORIN                         /00566701/ [Suspect]
     Active Substance: LEUCOVORIN
     Indication: COLORECTAL CANCER METASTATIC
     Dosage: 5 CYCLE
     Route: 042
     Dates: start: 2011
  13. CALCIUM FOLINATE [Suspect]
     Active Substance: LEUCOVORIN CALCIUM
     Dosage: UNK (A TOTAL OF 25 CYCLES OF FOLFIRI (OR FUFA) PLUS CETUXIMAB)
     Route: 065
     Dates: start: 2015
  14. CALCIUM FOLINATE [Suspect]
     Active Substance: LEUCOVORIN CALCIUM
     Dosage: 5 CYCLES OF MFOLFOX6, POSTOPERATIVELY
     Route: 065
  15. OXALIPLATIN. [Suspect]
     Active Substance: OXALIPLATIN
     Dosage: UNK (5 CYCLES OF MFOLFOX6, POSTOPERATIVELY)
     Route: 065
  16. 5?FLUOROURACIL                     /00098801/ [Suspect]
     Active Substance: FLUOROURACIL
     Indication: COLORECTAL CANCER METASTATIC
     Dosage: 5 CYCLE
     Route: 042
     Dates: start: 2011
  17. 5?FLUOROURACIL                     /00098801/ [Suspect]
     Active Substance: FLUOROURACIL
     Dosage: 6 CYCLES
     Route: 065

REACTIONS (5)
  - Neuropathy peripheral [Unknown]
  - Malignant neoplasm progression [Unknown]
  - Neutropenia [Unknown]
  - Colorectal cancer metastatic [Unknown]
  - Skin toxicity [Recovered/Resolved]

NARRATIVE: CASE EVENT DATE: 2011
